FAERS Safety Report 17914828 (Version 1)
Quarter: 2020Q2

REPORT INFORMATION
  Report Type: Report from Study
  Country: US (occurrence: US)
  Receive Date: 20200618
  Receipt Date: 20200618
  Transmission Date: 20200714
  Serious: Yes (Life-Threatening, Hospitalization, Other)
  Sender: FDA-Public Use
  Company Number: NVSC2019US091358

PATIENT
  Sex: Female
  Weight: 6.4 kg

DRUGS (7)
  1. ATROVENT [Concomitant]
     Active Substance: IPRATROPIUM BROMIDE
     Indication: PRODUCT USED FOR UNKNOWN INDICATION
     Dosage: 2 SPRAYS, BID
     Route: 048
     Dates: start: 20190909
  2. PREDNISONE. [Concomitant]
     Active Substance: PREDNISONE
     Indication: PROPHYLAXIS
     Dosage: UNK
     Route: 065
     Dates: start: 20190916, end: 20191110
  3. PREVNAR 13 [Concomitant]
     Active Substance: PNEUMOCOCCAL 13-VALENT CONJUGATE VACCINE
     Indication: PRODUCT USED FOR UNKNOWN INDICATION
     Dosage: 0.5 ML, ONCE/SINGLE
     Route: 065
     Dates: start: 20190926, end: 20190926
  4. PREDNISOLONE. [Concomitant]
     Active Substance: PREDNISOLONE
     Indication: PROPHYLAXIS
     Dosage: UNK
     Route: 065
  5. FLUARIX QUADRIVALENT [Concomitant]
     Indication: PRODUCT USED FOR UNKNOWN INDICATION
     Dosage: 0.5 ML, ONCE/SINGLE
     Route: 065
     Dates: start: 20190926, end: 20190926
  6. PULMOZYME [Concomitant]
     Active Substance: DORNASE ALFA
     Indication: PRODUCT USED FOR UNKNOWN INDICATION
     Dosage: UNK UNK, BID
     Route: 065
     Dates: start: 20190919, end: 20190919
  7. ZOLGENSMA [Suspect]
     Active Substance: ONASEMNOGENE ABEPARVOVEC-XIOI
     Indication: SPINAL MUSCULAR ATROPHY
     Dosage: UNK UNK, ONCE/SINGLE (1.1 X 10 TO THE 14TH VECTOR GENOMES (VG) PER KG OF BODY WEIGHT)
     Route: 042
     Dates: start: 20190920, end: 20190920

REACTIONS (39)
  - Pneumonia acinetobacter [Recovered/Resolved]
  - Generalised oedema [Unknown]
  - Pain [Unknown]
  - Proteinuria [Recovering/Resolving]
  - Platelet count decreased [Unknown]
  - Peripheral swelling [Unknown]
  - Blood urine present [Unknown]
  - Heart rate decreased [Unknown]
  - Reticulocyte count increased [Unknown]
  - Oedema [Unknown]
  - Hypertension [Unknown]
  - Sedation [Unknown]
  - Thrombotic microangiopathy [Recovered/Resolved]
  - Fluid retention [Unknown]
  - Haematuria [Unknown]
  - Pneumonia aspiration [Recovered/Resolved]
  - Blood pressure increased [Unknown]
  - Agitation [Not Recovered/Not Resolved]
  - Red blood cell schistocytes present [Unknown]
  - Liver function test increased [Recovering/Resolving]
  - Haemolytic uraemic syndrome [Recovered/Resolved]
  - Thrombotic microangiopathy [Not Recovered/Not Resolved]
  - Respiratory failure [Unknown]
  - Pasteurella infection [Recovered/Resolved]
  - Weight increased [Unknown]
  - Haemoglobin decreased [Unknown]
  - Blood pressure decreased [Unknown]
  - Renal impairment [Unknown]
  - Haematochezia [Unknown]
  - Blood lactate dehydrogenase increased [Unknown]
  - Haemolytic anaemia [Unknown]
  - Blood urea increased [Unknown]
  - Blood creatinine increased [Recovered/Resolved]
  - Renal vein thrombosis [Unknown]
  - Thrombocytopenia [Unknown]
  - Hypoalbuminaemia [Recovered/Resolved]
  - Microangiopathic haemolytic anaemia [Unknown]
  - Abdominal distension [Unknown]
  - Vomiting [Unknown]

NARRATIVE: CASE EVENT DATE: 20190923
